FAERS Safety Report 9504510 (Version 1)
Quarter: 2013Q3

REPORT INFORMATION
  Report Type: Spontaneous
  Country: JP (occurrence: JP)
  Receive Date: 20130906
  Receipt Date: 20130906
  Transmission Date: 20140515
  Serious: Yes (Death, Other)
  Sender: FDA-Public Use
  Company Number: PHHY2013JP097269

PATIENT
  Sex: Female

DRUGS (1)
  1. CHLORPHENIRAMINE [Suspect]

REACTIONS (6)
  - Accidental overdose [Fatal]
  - Accidental death [Fatal]
  - Fracture [Unknown]
  - Rib fracture [Unknown]
  - Fractured coccyx [Unknown]
  - Somnolence [Unknown]
